FAERS Safety Report 12105327 (Version 5)
Quarter: 2016Q2

REPORT INFORMATION
  Report Type: Spontaneous
  Country: US (occurrence: US)
  Receive Date: 20160223
  Receipt Date: 20160616
  Transmission Date: 20160815
  Serious: No
  Sender: FDA-Public Use
  Company Number: US-PFIZER INC-2016092297

PATIENT
  Age: 60 Year
  Sex: Male
  Weight: 111 kg

DRUGS (6)
  1. ASPIRIN (E.C.) [Concomitant]
     Active Substance: ASPIRIN
     Dosage: 81 MG, DAILY
  2. SUTENT [Suspect]
     Active Substance: SUNITINIB MALATE
     Indication: RENAL CELL CARCINOMA
     Dosage: 50 MG, CYCLIC (1 QDX 4 WEEK OFF 2 WEEK)
     Route: 048
     Dates: start: 20160204
  3. METFORMIN [Concomitant]
     Active Substance: METFORMIN HYDROCHLORIDE
     Dosage: 1000 MG, 2X/DAY
  4. SUTENT [Suspect]
     Active Substance: SUNITINIB MALATE
     Dosage: 50 MG, CYCLIC (DAILY, 4 WKS ON, 2 WKS OFF)
     Route: 048
  5. PREDNISONE. [Concomitant]
     Active Substance: PREDNISONE
     Dosage: UNK
     Dates: start: 20160310
  6. CLARITIN [Concomitant]
     Active Substance: LORATADINE
     Dosage: 10 MG, DAILY

REACTIONS (6)
  - Haematuria [Unknown]
  - Chromaturia [Unknown]
  - Dyspepsia [Unknown]
  - Hiccups [Unknown]
  - Cough [Unknown]
  - Dysuria [Unknown]
